FAERS Safety Report 14673378 (Version 1)
Quarter: 2018Q1

REPORT INFORMATION
  Report Type: Report from Study
  Country: FR (occurrence: FR)
  Receive Date: 20180323
  Receipt Date: 20180323
  Transmission Date: 20180509
  Serious: Yes (Death)
  Sender: FDA-Public Use
  Company Number: FR-ASTRAZENECA-2018SE35713

PATIENT
  Age: 86 Year
  Sex: Female

DRUGS (7)
  1. TICAGRELOR. [Suspect]
     Active Substance: TICAGRELOR
     Indication: ANTIPLATELET THERAPY
     Dosage: ADDITIONAL 90 MG WAS ADMINISTERED IN THE EVENING AFTER THE INTERVENTION
     Route: 048
  2. ASPIRIN. [Suspect]
     Active Substance: ASPIRIN
     Indication: ANTIPLATELET THERAPY
     Dosage: 250 MG STARTED DURING THE INTERVENTION
     Route: 042
  3. ASPIRIN. [Suspect]
     Active Substance: ASPIRIN
     Indication: ANTIPLATELET THERAPY
     Route: 065
  4. TICAGRELOR. [Suspect]
     Active Substance: TICAGRELOR
     Indication: ANTIPLATELET THERAPY
     Dosage: SECOND 180 MG LOADING DOSE IN THE MORNING OF THE PROCEDURE
     Route: 048
  5. TICAGRELOR. [Suspect]
     Active Substance: TICAGRELOR
     Indication: ANTIPLATELET THERAPY
     Dosage: 180 MG LOADING DOSE WAS ADMINISTERED THE EVENING BEFORE INTERVENTION
     Route: 048
  6. TICAGRELOR. [Suspect]
     Active Substance: TICAGRELOR
     Indication: ANTIPLATELET THERAPY
     Route: 048
  7. HEPARIN [Suspect]
     Active Substance: HEPARIN SODIUM
     Route: 042

REACTIONS (1)
  - Subdural haematoma [Fatal]
